FAERS Safety Report 6423908-4 (Version None)
Quarter: 2009Q4

REPORT INFORMATION
  Report Type: 
  Country: None (occurrence: None)
  Receive Date: 20091030
  Receipt Date: 20091030
  Transmission Date: 20100525
  Serious: Yes (Hospitalization)
  Sender: FDA-Public Use
  Company Number: None

PATIENT
  Age: 52 Year
  Sex: Female
  Weight: 76.3 kg

DRUGS (1)
  1. ESZOPICLONE [Suspect]
     Indication: INSOMNIA
     Dates: start: 20081023, end: 20081023

REACTIONS (2)
  - INTENTIONAL OVERDOSE [None]
  - MENTAL STATUS CHANGES [None]
